FAERS Safety Report 8016752-8 (Version None)
Quarter: 2012Q1

REPORT INFORMATION
  Report Type: 
  Country: None (occurrence: None)
  Receive Date: 20120102
  Receipt Date: 20111222
  Transmission Date: 20120608
  Serious: No
  Sender: FDA-Public Use
  Company Number: US-BIOGENIDEC-2011BI048583

PATIENT
  Sex: Female

DRUGS (2)
  1. IBUPROFEN [Concomitant]
     Indication: PREMEDICATION
  2. AVONEX [Suspect]
     Indication: MULTIPLE SCLEROSIS
     Route: 030
     Dates: start: 20110309

REACTIONS (8)
  - LACRIMAL DISORDER [None]
  - PARAESTHESIA [None]
  - ASTHENIA [None]
  - HYPOPHAGIA [None]
  - VISION BLURRED [None]
  - FATIGUE [None]
  - INFLUENZA LIKE ILLNESS [None]
  - OCULAR ICTERUS [None]
